FAERS Safety Report 4998847-6 (Version None)
Quarter: 2006Q2

REPORT INFORMATION
  Report Type: 
  Country: None (occurrence: None)
  Receive Date: 20060510
  Receipt Date: 20050419
  Transmission Date: 20061013
  Serious: Yes (Death, Other)
  Sender: FDA-Public Use
  Company Number: US-MERCK-0504USA03750

PATIENT
  Age: 68 Year
  Sex: Female
  Weight: 59 kg

DRUGS (2)
  1. VIOXX [Suspect]
     Indication: ARTHRITIS
     Route: 048
     Dates: start: 20020109, end: 20040101
  2. TYLENOL [Concomitant]
     Route: 065

REACTIONS (9)
  - AORTIC ANEURYSM [None]
  - DISORIENTATION [None]
  - EMPHYSEMA [None]
  - MIGRAINE [None]
  - NECK PAIN [None]
  - OVERDOSE [None]
  - PERIPHERAL VASCULAR DISORDER [None]
  - PULMONARY EMBOLISM [None]
  - RESPIRATORY DISTRESS [None]
